FAERS Safety Report 17972219 (Version 1)
Quarter: 2020Q3

REPORT INFORMATION
  Report Type: Spontaneous
  Country: US (occurrence: US)
  Receive Date: 20200702
  Receipt Date: 20200702
  Transmission Date: 20201103
  Serious: No
  Sender: FDA-Public Use
  Company Number: US-ELI_LILLY_AND_COMPANY-US202007000761

PATIENT
  Sex: Female

DRUGS (4)
  1. NOVOLIN N [Concomitant]
     Active Substance: INSULIN HUMAN
     Indication: TYPE 2 DIABETES MELLITUS
     Dosage: 40 MG, DAILY
  2. HUMALOG [Suspect]
     Active Substance: INSULIN LISPRO
     Dosage: 50 U, DAILY
     Route: 058
     Dates: start: 20200530
  3. HUMALOG [Suspect]
     Active Substance: INSULIN LISPRO
     Indication: TYPE 2 DIABETES MELLITUS
     Dosage: 50 U, DAILY
     Route: 058
     Dates: start: 20200530
  4. HUMULIN R [Suspect]
     Active Substance: INSULIN HUMAN
     Indication: TYPE 2 DIABETES MELLITUS
     Dosage: UNK UNK, UNKNOWN
     Route: 065

REACTIONS (1)
  - Blood glucose increased [Unknown]
